FAERS Safety Report 19934869 (Version 1)
Quarter: 2021Q4

REPORT INFORMATION
  Report Type: Spontaneous
  Country: US (occurrence: US)
  Receive Date: 20211008
  Receipt Date: 20211008
  Transmission Date: 20220303
  Serious: No
  Sender: FDA-Public Use
  Company Number: US-MYLANLABS-2021M1066208

PATIENT
  Sex: Female
  Weight: 129 kg

DRUGS (1)
  1. POTASSIUM CHLORIDE [Suspect]
     Active Substance: POTASSIUM CHLORIDE
     Indication: Medical diet
     Dosage: 10 MILLIEQUIVALENT, QD, ONE EVERY DAY
     Route: 048

REACTIONS (1)
  - Product residue present [Not Recovered/Not Resolved]
